FAERS Safety Report 4888479-2 (Version None)
Quarter: 2005Q4

REPORT INFORMATION
  Report Type: 
  Country: None (occurrence: None)
  Receive Date: 20051207
  Receipt Date: 20050326
  Transmission Date: 20060501
  Serious: Yes (Other)
  Sender: FDA-Public Use
  Company Number: 2005050143

PATIENT
  Age: 31 Year
  Sex: Male
  Weight: 86.1834 kg

DRUGS (5)
  1. VIAGRA [Suspect]
     Indication: ERECTILE DYSFUNCTION
     Dosage: UNKNOWN (UNK, UNKNOWN), ORAL
     Route: 048
     Dates: start: 20050301
  2. TOCOPHEROL (TOCOPHEROL) [Concomitant]
  3. ASCORBIC ACID [Concomitant]
  4. MULTIVITAMINS (ASCORBIC ACID, ERGOCALCIFEROL, FOLIC ACID, NICOTINAMIDE [Concomitant]
  5. SERENOA REPENS (SERENOA REPENS) [Concomitant]

REACTIONS (4)
  - EJACULATION FAILURE [None]
  - ERECTION INCREASED [None]
  - PENILE VASCULAR DISORDER [None]
  - PENIS DISORDER [None]
